FAERS Safety Report 15460793 (Version 5)
Quarter: 2019Q1

REPORT INFORMATION
  Report Type: Spontaneous
  Country: US (occurrence: US)
  Receive Date: 20181003
  Receipt Date: 20190318
  Transmission Date: 20190417
  Serious: No
  Sender: FDA-Public Use
  Company Number: US-BRISTOL-MYERS SQUIBB COMPANY-BMS-2018-092313

PATIENT
  Sex: Female
  Weight: 58.51 kg

DRUGS (1)
  1. ORENCIA [Suspect]
     Active Substance: ABATACEPT
     Indication: RHEUMATOID ARTHRITIS
     Dosage: 125 MG, QWK
     Route: 058
     Dates: start: 20180821

REACTIONS (4)
  - Hypersensitivity [Unknown]
  - Fatigue [Unknown]
  - Feeling abnormal [Unknown]
  - Sinusitis [Unknown]
